FAERS Safety Report 21615411 (Version 3)
Quarter: 2022Q4

REPORT INFORMATION
  Report Type: Spontaneous
  Country: US (occurrence: US)
  Receive Date: 20221118
  Receipt Date: 20221207
  Transmission Date: 20230113
  Serious: No
  Sender: FDA-Public Use
  Company Number: US-AMGEN-USASP2022196797

PATIENT

DRUGS (10)
  1. FILGRASTIM [Suspect]
     Active Substance: FILGRASTIM
     Indication: Neutropenia
     Dosage: 300 MICROGRAM, FOR TWO DAYS ON DAY 7
     Route: 065
  2. GEMCITABINE [Concomitant]
     Active Substance: GEMCITABINE
     Dosage: 500 MILLIGRAM/SQ. METER, BIWEEKLY
  3. IRINOTECAN [Concomitant]
     Active Substance: IRINOTECAN
     Dosage: 80 MILLIGRAM/SQ. METER
  4. FLUOROURACIL [Concomitant]
     Active Substance: FLUOROURACIL
     Dosage: 1200 MILLIGRAM/SQ. METER OVER 24 HOURS
  5. LEUCOVORIN [Concomitant]
     Active Substance: LEUCOVORIN
     Dosage: 250 MILLIGRAM
  6. OXALIPLATIN [Concomitant]
     Active Substance: OXALIPLATIN
     Dosage: ON DAY 2, 40 MILLIGRAM/SQ. METER
  7. DOCETAXEL [Concomitant]
     Active Substance: DOCETAXEL
     Dosage: 25 MILLIGRAM/SQ. METER
  8. CETUXIMAB [Concomitant]
     Active Substance: CETUXIMAB
     Dosage: UNK, QWK
  9. MITOMYCIN C [Concomitant]
     Active Substance: MITOMYCIN
     Dosage: 6 MILLIGRAM/SQ. METER
  10. BEVACIZUMAB [Concomitant]
     Active Substance: BEVACIZUMAB
     Dosage: 10 MILLIGRAM/KILOGRAM, Q2WK

REACTIONS (2)
  - Disease progression [Unknown]
  - Toxicity to various agents [Unknown]
